FAERS Safety Report 9256190 (Version 2)
Quarter: 2019Q1

REPORT INFORMATION
  Report Type: Spontaneous
  Country: US (occurrence: US)
  Receive Date: 20130425
  Receipt Date: 20190313
  Transmission Date: 20190418
  Serious: No
  Sender: FDA-Public Use
  Company Number: US-AMGEN-USASP2012052705

PATIENT
  Age: 16 Month
  Sex: Female
  Weight: 2.72 kg

DRUGS (17)
  1. IPV VACCINE [Concomitant]
     Dosage: UNK
     Dates: start: 20110707
  2. MEASLES, MUMPS AND RUBELLA VACCINE [Concomitant]
     Active Substance: MEASLES-MUMPS-RUBELLA VIRUS VACCINE
     Dosage: UNK
     Dates: start: 20120509
  3. ROTAVIRUS VACCINE [Concomitant]
     Active Substance: HUMAN ROTAVIRUS A
     Dosage: UNK
     Dates: start: 20110707
  4. NEULASTA [Suspect]
     Active Substance: PEGFILGRASTIM
     Indication: MATERNAL EXPOSURE DURING BREAST FEEDING
     Dosage: 6 MILLIGRAM, Q3WK
     Route: 063
     Dates: start: 2011
  5. HEPATITIS A VACCINE [Concomitant]
     Active Substance: HEPATITIS A VIRUS STRAIN HM175 ANTIGEN (FORMALDEHYDE INACTIVATED)
     Dosage: UNK
     Dates: start: 20120509
  6. INFLUENZA VACCINE [Concomitant]
     Active Substance: INFLUENZA VIRUS VACCINE
     Dosage: UNK
     Dates: start: 20111115
  7. VARICELLA VACCINE [Concomitant]
     Active Substance: VARICELLA-ZOSTER VIRUS STRAIN OKA/MERCK LIVE ANTIGEN
     Dosage: UNK
     Dates: start: 20120509
  8. HAEMOPHILUS INFLUENZAE TYPE B [Concomitant]
     Active Substance: HAEMOPHILUS INFLUENZAE TYPE B
     Dosage: UNK
     Dates: start: 20110707
  9. MORTIN [Concomitant]
     Active Substance: SULFAMETHOXAZOLE\TRIMETHOPRIM
     Dosage: UNK UNK, AS NECESSARY (600-800 MG)
     Route: 063
  10. VICODIN [Concomitant]
     Active Substance: ACETAMINOPHEN\HYDROCODONE BITARTRATE
     Dosage: UNK UNK, AS NECESSARY (5/500)
     Route: 063
  11. NEUPOGEN [Suspect]
     Active Substance: FILGRASTIM
     Dosage: UNK UNK, 2 TIMES/WK
     Route: 063
     Dates: start: 2012
  12. HEPATITIS B VACCINE [Concomitant]
     Active Substance: HEPATITIS B VIRUS VACCINE
     Dosage: UNK
     Dates: start: 20110507
  13. NEUPOGEN [Suspect]
     Active Substance: FILGRASTIM
     Indication: MATERNAL EXPOSURE DURING BREAST FEEDING
     Dosage: 150 MICROGRAM, QWK (ON TUES AND THURS)
     Route: 063
     Dates: start: 2012
  14. ZANTAC [Concomitant]
     Active Substance: RANITIDINE HYDROCHLORIDE
     Dosage: 2 MILLILITER, BID (2 X DAILY)
     Route: 048
     Dates: start: 20110701
  15. DIPHTHERIA TETANUS PERTUSSIS VACCINE [Concomitant]
     Dosage: UNK
     Dates: start: 20110707
  16. PNEUMOCOCCAL CONJUGATE VACCINE [Concomitant]
     Active Substance: PNEUMOCOCCAL VACCINE POLYVALENT
     Dosage: UNK
     Dates: start: 20110707
  17. ALBUTEROL. [Concomitant]
     Active Substance: ALBUTEROL
     Dosage: UNK UNK, AS NECESSARY
     Route: 063

REACTIONS (3)
  - Gastrooesophageal reflux disease [Unknown]
  - Exposure via breast milk [Unknown]
  - Breast disorder [Unknown]

NARRATIVE: CASE EVENT DATE: 2011
